FAERS Safety Report 4715046-3 (Version None)
Quarter: 2005Q2

REPORT INFORMATION
  Report Type: 
  Country: None (occurrence: None)
  Receive Date: 20050630
  Receipt Date: 20050506
  Transmission Date: 20051028
  Serious: Yes (Hospitalization)
  Sender: FDA-Public Use
  Company Number: 214310

PATIENT
  Sex: 0

DRUGS (7)
  1. AVASTIN [Suspect]
     Indication: GASTRIC CANCER
     Dosage: INTRAVENOUS
     Route: 042
  2. ELOXATIN [Suspect]
     Indication: GASTRIC ULCER
     Dosage: INTRAVENOUS
     Route: 042
  3. FLUOROURACIL [Concomitant]
  4. LEUCOVORIN CALCIUM [Concomitant]
  5. ANTIEMETICS (ANTIEMETICS) [Concomitant]
  6. BLOOD PRESSURE MEDICATION NOS (ANTIHYPERTENSIVE NOS) [Concomitant]
  7. HEART MEDICATION (CARDIAC MEDICATION NOS) [Concomitant]

REACTIONS (2)
  - HYPERSENSITIVITY [None]
  - SYNCOPE [None]
